FAERS Safety Report 7176695-9 (Version None)
Quarter: 2010Q4

REPORT INFORMATION
  Report Type: 
  Country: None (occurrence: None)
  Receive Date: 20101215
  Receipt Date: 20101215
  Transmission Date: 20110411
  Serious: Yes (Death)
  Sender: FDA-Public Use
  Company Number: None

PATIENT
  Age: 50 Year
  Sex: Male

DRUGS (10)
  1. MYCOPHENOLATE MEFETIL [Suspect]
     Indication: LIVER TRANSPLANT
     Dosage: 1000MG BID BUCCAL
     Route: 002
     Dates: start: 20090201, end: 20101201
  2. ACTOS [Concomitant]
  3. ATENOLOL [Concomitant]
  4. LANTUS [Concomitant]
  5. CHLORLTHALIDONE [Concomitant]
  6. AMLODIPINE [Concomitant]
  7. PREDNISONE [Concomitant]
  8. ASPIRIN [Concomitant]
  9. DAXASOZIN [Concomitant]
  10. M.V.I. [Concomitant]

REACTIONS (1)
  - DEATH [None]
